FAERS Safety Report 5023948-6 (Version None)
Quarter: 2006Q2

REPORT INFORMATION
  Report Type: 
  Country: None (occurrence: None)
  Receive Date: 20060607
  Receipt Date: 20060529
  Transmission Date: 20061013
  Serious: Yes (Hospitalization, Other)
  Sender: FDA-Public Use
  Company Number: 233324K06USA

PATIENT
  Age: 53 Year
  Sex: Female

DRUGS (7)
  1. REBIF [Suspect]
     Indication: MULTIPLE SCLEROSIS
     Dates: start: 20050101
  2. TOPRAL (SULTOPRIDE) [Concomitant]
  3. SANCTURA [Concomitant]
  4. BACLOFEN [Concomitant]
  5. PROVIGIL [Concomitant]
  6. TRILEPTAL [Concomitant]
  7. AMANTADINE HCL [Concomitant]

REACTIONS (4)
  - ARTHRITIS INFECTIVE [None]
  - INJECTION SITE ERYTHEMA [None]
  - LOCALISED INFECTION [None]
  - PURULENCE [None]
